FAERS Safety Report 21023586 (Version 2)
Quarter: 2023Q1

REPORT INFORMATION
  Report Type: Spontaneous
  Country: JP (occurrence: JP)
  Receive Date: 20220629
  Receipt Date: 20230124
  Transmission Date: 20230417
  Serious: Yes (Death, Other)
  Sender: FDA-Public Use
  Company Number: JP-ELI_LILLY_AND_COMPANY-JP202206013585

PATIENT
  Age: 71 Year
  Sex: Male

DRUGS (4)
  1. NECITUMUMAB [Suspect]
     Active Substance: NECITUMUMAB
     Indication: Lung squamous cell carcinoma stage III
     Dosage: 800 MG, OTHER
     Route: 041
     Dates: start: 20220419
  2. GEMCITABINE HYDROCHLORIDE [Suspect]
     Active Substance: GEMCITABINE HYDROCHLORIDE
     Indication: Lung squamous cell carcinoma stage III
     Dosage: 1250 MG, OTHER
     Route: 041
     Dates: start: 20220419
  3. CISPLATIN [Suspect]
     Active Substance: CISPLATIN
     Indication: Lung squamous cell carcinoma stage III
     Dosage: 75 MG/M2, UNKNOWN
     Route: 065
     Dates: start: 20220419
  4. PREDONINE [Suspect]
     Active Substance: PREDNISOLONE
     Indication: Rash
     Route: 065

REACTIONS (4)
  - Lung disorder [Fatal]
  - Pneumonia bacterial [Fatal]
  - Blood glucose increased [Unknown]
  - Rash [Unknown]

NARRATIVE: CASE EVENT DATE: 20220531
